FAERS Safety Report 7805193-1 (Version None)
Quarter: 2011Q4

REPORT INFORMATION
  Report Type: 
  Country: None (occurrence: None)
  Receive Date: 20111010
  Receipt Date: 20110708
  Transmission Date: 20120403
  Serious: Yes (Hospitalization, Other)
  Sender: FDA-Public Use
  Company Number: US-SANOFI-AVENTIS-2011SA044244

PATIENT
  Age: 89 Year
  Sex: Female

DRUGS (1)
  1. MULTAQ [Suspect]
     Route: 048
     Dates: start: 20110401

REACTIONS (5)
  - ORTHOPNOEA [None]
  - COUGH [None]
  - OEDEMA [None]
  - ATRIAL FIBRILLATION [None]
  - CARDIAC FAILURE [None]
